FAERS Safety Report 5161042-4 (Version None)
Quarter: 2006Q4

REPORT INFORMATION
  Report Type: 
  Country: None (occurrence: None)
  Receive Date: 20061121
  Receipt Date: 20061107
  Transmission Date: 20070319
  Serious: Yes (Hospitalization, Other)
  Sender: FDA-Public Use
  Company Number: 2006139921

PATIENT
  Age: 67 Year
  Sex: Male

DRUGS (4)
  1. VIAGRA [Suspect]
     Dosage: 25 MG (25 MG, 1 AS NECESSARY), ORAL
     Route: 048
  2. NORVASC [Concomitant]
  3. NEBIVOLOL HCL [Concomitant]
  4. DIOVAN [Concomitant]

REACTIONS (3)
  - BLOOD PRESSURE SYSTOLIC INCREASED [None]
  - DRUG INEFFECTIVE [None]
  - HEADACHE [None]
